FAERS Safety Report 23427933 (Version 4)
Quarter: 2024Q1

REPORT INFORMATION
  Report Type: Spontaneous
  Country: US (occurrence: US)
  Receive Date: 20240122
  Receipt Date: 20240312
  Transmission Date: 20240410
  Serious: No
  Sender: FDA-Public Use
  Company Number: US-PFIZER INC-PV202400008040

PATIENT
  Age: 59 Year
  Sex: Female

DRUGS (3)
  1. IBRANCE [Suspect]
     Active Substance: PALBOCICLIB
     Dosage: 100 MG
  2. IBRANCE [Suspect]
     Active Substance: PALBOCICLIB
     Dosage: 75 MG, DAILY
  3. LETROZOLE [Concomitant]
     Active Substance: LETROZOLE

REACTIONS (13)
  - Full blood count decreased [Unknown]
  - Tooth disorder [Unknown]
  - Fatigue [Unknown]
  - Epistaxis [Recovering/Resolving]
  - Dysgeusia [Not Recovered/Not Resolved]
  - Tongue rough [Unknown]
  - White blood cell count decreased [Unknown]
  - Red blood cell count decreased [Unknown]
  - Hyperaesthesia teeth [Unknown]
  - Alopecia [Unknown]
  - Tongue disorder [Unknown]
  - Neuralgia [Unknown]
  - Dry eye [Unknown]
